FAERS Safety Report 6407240-0 (Version None)
Quarter: 2009Q4

REPORT INFORMATION
  Report Type: 
  Country: None (occurrence: None)
  Receive Date: 20091020
  Receipt Date: 20091006
  Transmission Date: 20100525
  Serious: Yes (Hospitalization)
  Sender: FDA-Public Use
  Company Number: PHEH2009US13256

PATIENT
  Sex: Female

DRUGS (1)
  1. EXJADE [Suspect]
     Dosage: 2000 MG, ONCE/SINGLE
     Route: 048
     Dates: start: 20090917, end: 20090917

REACTIONS (12)
  - BLISTER [None]
  - BURNING SENSATION [None]
  - LOCAL SWELLING [None]
  - NECK PAIN [None]
  - PAIN IN EXTREMITY [None]
  - PYREXIA [None]
  - RASH ERYTHEMATOUS [None]
  - SICKLE CELL ANAEMIA WITH CRISIS [None]
  - SKIN EXFOLIATION [None]
  - TONGUE BLISTERING [None]
  - TONGUE DISCOLOURATION [None]
  - VAGINAL SWELLING [None]
